FAERS Safety Report 8608369-9 (Version None)
Quarter: 2012Q3

REPORT INFORMATION
  Report Type: 
  Country: None (occurrence: None)
  Receive Date: 20120821
  Receipt Date: 20120808
  Transmission Date: 20120928
  Serious: No
  Sender: FDA-Public Use
  Company Number: US-ASTRAZENECA-2012SE56361

PATIENT
  Age: 62 Year
  Sex: Female

DRUGS (1)
  1. METOPROLOL SUCCINATE [Suspect]
     Route: 048

REACTIONS (7)
  - FACIAL SPASM [None]
  - FACIAL NERVE DISORDER [None]
  - MUSCULOSKELETAL STIFFNESS [None]
  - TINNITUS [None]
  - BRUXISM [None]
  - ERYTHEMA [None]
  - THINKING ABNORMAL [None]
